FAERS Safety Report 21943891 (Version 5)
Quarter: 2023Q1

REPORT INFORMATION
  Report Type: Report from Study
  Country: US (occurrence: US)
  Receive Date: 20230202
  Receipt Date: 20230216
  Transmission Date: 20230417
  Serious: No
  Sender: FDA-Public Use
  Company Number: US-002147023-NVSC2023US019092

PATIENT
  Sex: Female

DRUGS (3)
  1. COSENTYX [Suspect]
     Active Substance: SECUKINUMAB
     Indication: Psoriatic arthropathy
     Dosage: UNK UNK, QW (EVERY WEEK X 5 WEEKS)
     Route: 058
     Dates: start: 202301
  2. COSENTYX [Suspect]
     Active Substance: SECUKINUMAB
     Dosage: UNK UNK, QMO (EVERY 4 WEEKS)
     Route: 058
     Dates: start: 202301
  3. COSENTYX [Suspect]
     Active Substance: SECUKINUMAB
     Dosage: 300 MG, QW
     Route: 058

REACTIONS (10)
  - Arthritis [Unknown]
  - Hand deformity [Unknown]
  - Arthralgia [Unknown]
  - Decreased activity [Unknown]
  - Musculoskeletal deformity [Unknown]
  - Pain in extremity [Unknown]
  - Nail injury [Unknown]
  - Injection site pain [Unknown]
  - Diarrhoea [Unknown]
  - Drug ineffective [Unknown]
